FAERS Safety Report 9056573 (Version 1)
Quarter: 2013Q1

REPORT INFORMATION
  Report Type: Report from Study
  Country: CA (occurrence: CA)
  Receive Date: 20130204
  Receipt Date: 20130204
  Transmission Date: 20140127
  Serious: Yes (Life-Threatening, Other)
  Sender: FDA-Public Use
  Company Number: CA-ROCHE-1187339

PATIENT
  Sex: Male
  Weight: 115 kg

DRUGS (7)
  1. AVASTIN [Suspect]
     Indication: GLIOBLASTOMA
     Dosage: THERAPY START DATE: 20/APR/2011
     Route: 042
     Dates: end: 20111130
  2. TEGRETOL [Concomitant]
  3. KEPPRA [Concomitant]
  4. FRISIUM [Concomitant]
  5. DECADRON [Concomitant]
  6. CALCIUM [Concomitant]
  7. VITAMIN D [Concomitant]

REACTIONS (2)
  - Haemorrhage intracranial [Unknown]
  - Disease progression [Unknown]
